FAERS Safety Report 14648923 (Version 1)
Quarter: 2018Q1

REPORT INFORMATION
  Report Type: Spontaneous
  Country: FR (occurrence: FR)
  Receive Date: 20180316
  Receipt Date: 20180316
  Transmission Date: 20180509
  Serious: Yes (Hospitalization)
  Sender: FDA-Public Use
  Company Number: FR-PFIZER INC-2018107093

PATIENT
  Age: 65 Year
  Sex: Male
  Weight: 70 kg

DRUGS (2)
  1. MERONEM [Suspect]
     Active Substance: MEROPENEM
     Dosage: UNK
     Route: 042
     Dates: start: 20171001, end: 20171117
  2. TYGACIL [Suspect]
     Active Substance: TIGECYCLINE
     Dosage: 200 MG, 1X/DAY
     Route: 042
     Dates: start: 20171017, end: 20171103

REACTIONS (3)
  - Diarrhoea [Recovered/Resolved]
  - Cholestasis [Recovered/Resolved]
  - Thrombocytopenia [Recovered/Resolved]

NARRATIVE: CASE EVENT DATE: 20171020
